FAERS Safety Report 22126357 (Version 3)
Quarter: 2023Q2

REPORT INFORMATION
  Report Type: Spontaneous
  Country: US (occurrence: US)
  Receive Date: 20230322
  Receipt Date: 20230601
  Transmission Date: 20230721
  Serious: No
  Sender: FDA-Public Use
  Company Number: US-ALLERGAN-2302451US

PATIENT
  Age: 56 Year
  Sex: Female
  Weight: 56.699 kg

DRUGS (2)
  1. LATISSE [Suspect]
     Active Substance: BIMATOPROST
     Indication: Growth of eyelashes
     Dosage: 1 DF, QD
     Dates: start: 20230210, end: 20230216
  2. LATISSE [Suspect]
     Active Substance: BIMATOPROST
     Indication: Product used for unknown indication

REACTIONS (6)
  - Ocular discomfort [Recovered/Resolved]
  - Swelling of eyelid [Recovered/Resolved]
  - Ocular hyperaemia [Recovered/Resolved]
  - Eye pruritus [Recovered/Resolved]
  - Dry eye [Recovered/Resolved]
  - Lacrimation increased [Recovered/Resolved]

NARRATIVE: CASE EVENT DATE: 20230213
